FAERS Safety Report 9528942 (Version 1)
Quarter: 2013Q2

REPORT INFORMATION
  Report Type: Spontaneous
  Country: US (occurrence: None)
  Receive Date: 20130401
  Receipt Date: 20130401
  Transmission Date: 20140414
  Serious: Yes (Other)
  Sender: FDA-Public Use
  Company Number: PHEH2012US024419

PATIENT
  Age: 82 Year
  Sex: Male

DRUGS (1)
  1. EXELON PATCH [Suspect]
     Indication: DEMENTIA
     Dosage: 4.6 MG, / 24 HRS, TRANSDERMAL
     Route: 062
     Dates: start: 20120921, end: 20120930

REACTIONS (5)
  - Cerebrovascular accident [None]
  - Abnormal behaviour [None]
  - Aggression [None]
  - Gait disturbance [None]
  - Cerebral thrombosis [None]
